FAERS Safety Report 9825478 (Version 1)
Quarter: 2013Q4

REPORT INFORMATION
  Report Type: Spontaneous
  Country: US (occurrence: None)
  Receive Date: 20131223
  Receipt Date: 20131223
  Transmission Date: 20140711
  Serious: Yes (Other)
  Sender: FDA-Public Use
  Company Number: 219313LEO

PATIENT
  Sex: Female

DRUGS (1)
  1. PICATO GEL [Suspect]
     Indication: ACTINIC KERATOSIS
     Route: 061
     Dates: start: 20121002, end: 20121004

REACTIONS (7)
  - Application site vesicles [None]
  - Application site scab [None]
  - Application site exfoliation [None]
  - Swelling face [None]
  - Facial pain [None]
  - Scab [None]
  - Incorrect dose administered [None]
